FAERS Safety Report 23226862 (Version 1)
Quarter: 2023Q4

REPORT INFORMATION
  Report Type: Report from Study
  Country: US (occurrence: None)
  Receive Date: 20231124
  Receipt Date: 20231124
  Transmission Date: 20240109
  Serious: Yes (Other)
  Sender: FDA-Public Use
  Company Number: 2023A267165

PATIENT
  Sex: Male

DRUGS (1)
  1. CALQUENCE [Suspect]
     Active Substance: ACALABRUTINIB
     Indication: Chronic lymphocytic leukaemia
     Route: 048

REACTIONS (9)
  - White blood cell count abnormal [Unknown]
  - Contusion [Unknown]
  - Rash [Unknown]
  - Pain [Unknown]
  - Haemorrhoids [Unknown]
  - Erectile dysfunction [Unknown]
  - Prostatic specific antigen increased [Unknown]
  - Executive dysfunction [Unknown]
  - Blood testosterone decreased [Unknown]
